FAERS Safety Report 16811579 (Version 1)
Quarter: 2019Q3

REPORT INFORMATION
  Report Type: Spontaneous
  Country: FR (occurrence: FR)
  Receive Date: 20190916
  Receipt Date: 20190916
  Transmission Date: 20191005
  Serious: Yes (Other)
  Sender: FDA-Public Use
  Company Number: FR-ALLERGAN-1933792US

PATIENT
  Sex: Female

DRUGS (4)
  1. LEXOMIL [Suspect]
     Active Substance: BROMAZEPAM
     Indication: PRODUCT USED FOR UNKNOWN INDICATION
  2. ESCITALOPRAM OXALATE - BP [Suspect]
     Active Substance: ESCITALOPRAM OXALATE
     Indication: DEPRESSION
     Dosage: 10 MG, QD
     Route: 065
  3. THERALENE [Suspect]
     Active Substance: TRIMEPRAZINE
     Indication: INSOMNIA
     Dosage: 2 TABLETS IN THE EVENING
     Route: 065
     Dates: end: 20190717
  4. ESCITALOPRAM OXALATE - BP [Suspect]
     Active Substance: ESCITALOPRAM OXALATE
     Dosage: 5 MG, QD
     Route: 065

REACTIONS (4)
  - Narrow anterior chamber angle [Not Recovered/Not Resolved]
  - Abnormal weight gain [Recovering/Resolving]
  - Increased appetite [Recovering/Resolving]
  - Gingival bleeding [Recovering/Resolving]
